FAERS Safety Report 16141118 (Version 1)
Quarter: 2019Q2

REPORT INFORMATION
  Report Type: Spontaneous
  Country: US (occurrence: US)
  Receive Date: 20190401
  Receipt Date: 20190401
  Transmission Date: 20190711
  Serious: No
  Sender: FDA-Public Use
  Company Number: US-PFIZER INC-2019126561

PATIENT
  Sex: Male
  Weight: 95.25 kg

DRUGS (1)
  1. SUTENT [Suspect]
     Active Substance: SUNITINIB MALATE
     Indication: RENAL CANCER
     Dosage: 50 MG, DAILY
     Route: 048

REACTIONS (4)
  - Body temperature fluctuation [Unknown]
  - Stomatitis [Unknown]
  - Feeding disorder [Unknown]
  - Gingival pain [Unknown]
